FAERS Safety Report 4519348-5 (Version None)
Quarter: 2004Q4

REPORT INFORMATION
  Report Type: 
  Country: None (occurrence: None)
  Receive Date: 20041202
  Receipt Date: 20041118
  Transmission Date: 20050328
  Serious: Yes (Hospitalization, Other)
  Sender: FDA-Public Use
  Company Number: 2004240755US

PATIENT
  Sex: Female
  Weight: 68.0396 kg

DRUGS (6)
  1. CELEBREX [Suspect]
     Indication: ARTHRITIS
     Dosage: (1 IN 1 D), ORAL
     Route: 048
     Dates: start: 20030306, end: 20030331
  2. CELEBREX [Suspect]
     Indication: TENDONITIS
     Dosage: (1 IN 1 D), ORAL
     Route: 048
     Dates: start: 20030306, end: 20030331
  3. CELEBREX [Suspect]
     Indication: ARTHRITIS
     Dosage: (1 IN 1 D), ORAL
     Route: 048
     Dates: start: 20030421, end: 20030421
  4. CELEBREX [Suspect]
     Indication: TENDONITIS
     Dosage: (1 IN 1 D), ORAL
     Route: 048
     Dates: start: 20030421, end: 20030421
  5. ATENOLOL [Concomitant]
  6. CONJUGATED ESTROGENS [Concomitant]

REACTIONS (8)
  - BLINDNESS UNILATERAL [None]
  - BLOOD PRESSURE DECREASED [None]
  - CEREBROVASCULAR ACCIDENT [None]
  - HEPATIC FUNCTION ABNORMAL [None]
  - IMPAIRED DRIVING ABILITY [None]
  - RENAL IMPAIRMENT [None]
  - VISUAL FIELD DEFECT [None]
  - VOMITING [None]
